FAERS Safety Report 23524229 (Version 4)
Quarter: 2025Q2

REPORT INFORMATION
  Report Type: Spontaneous
  Country: JP (occurrence: JP)
  Receive Date: 20240214
  Receipt Date: 20250402
  Transmission Date: 20250717
  Serious: Yes (Other)
  Sender: EISAI
  Company Number: JP-Eisai-202308927_LEN-EC_P_1

PATIENT
  Age: 59 Year
  Sex: Female

DRUGS (6)
  1. LENVIMA [Suspect]
     Active Substance: LENVATINIB
     Indication: Endometrial cancer
     Dates: start: 20230830, end: 202310
  2. LENVIMA [Suspect]
     Active Substance: LENVATINIB
     Dates: start: 20231101
  3. LENVIMA [Suspect]
     Active Substance: LENVATINIB
     Dates: end: 202407
  4. LENVIMA [Suspect]
     Active Substance: LENVATINIB
  5. KEYTRUDA [Suspect]
     Active Substance: PEMBROLIZUMAB
     Indication: Endometrial cancer
     Route: 041
     Dates: start: 20230830, end: 202407
  6. KEYTRUDA [Suspect]
     Active Substance: PEMBROLIZUMAB
     Route: 041

REACTIONS (6)
  - Hepatic enzyme increased [Recovered/Resolved]
  - Malaise [Recovered/Resolved]
  - Weight decreased [Recovered/Resolved]
  - Taste disorder [Recovered/Resolved]
  - Decreased appetite [Recovered/Resolved]
  - Silent thyroiditis [Recovered/Resolved]

NARRATIVE: CASE EVENT DATE: 20231001
